FAERS Safety Report 13641921 (Version 1)
Quarter: 2017Q2

REPORT INFORMATION
  Report Type: Spontaneous
  Country: US (occurrence: US)
  Receive Date: 20170609
  Receipt Date: 20170609
  Transmission Date: 20170830
  Serious: Yes (Hospitalization)
  Sender: FDA-Public Use
  Company Number: None

PATIENT
  Age: 68 Year
  Sex: Male
  Weight: 66.6 kg

DRUGS (1)
  1. CEFEPIME [Suspect]
     Active Substance: CEFEPIME HYDROCHLORIDE
     Indication: OSTEOMYELITIS
     Route: 042
     Dates: start: 20170414, end: 20170418

REACTIONS (6)
  - Joint contracture [None]
  - Mental status changes [None]
  - Status epilepticus [None]
  - Electroencephalogram abnormal [None]
  - Neurotoxicity [None]
  - Disorientation [None]

NARRATIVE: CASE EVENT DATE: 20170417
